FAERS Safety Report 8868390 (Version 1)
Quarter: 2012Q4

REPORT INFORMATION
  Report Type: 
  Country: US (occurrence: US)
  Receive Date: 20121025
  Receipt Date: 20121025
  Transmission Date: 20130627
  Serious: No
  Sender: FDA-Public Use
  Company Number: US-AMGEN-USASP2012019584

PATIENT
  Sex: Female

DRUGS (10)
  1. ENBREL [Suspect]
     Indication: PRODUCT USED FOR UNKNOWN INDICATION
     Dosage: 50 mg, qwk
     Route: 058
  2. WARFARIN [Concomitant]
     Dosage: 2 mg, UNK
  3. PREDNISONE [Concomitant]
     Dosage: 2.5 mg, UNK
  4. DIOVAN [Concomitant]
     Dosage: 80 mg, UNK
  5. FOLIC ACID [Concomitant]
     Dosage: 1 mg, UNK
  6. NEXIUM                             /01479302/ [Concomitant]
     Dosage: 40 mg, UNK
  7. LASIX                              /00032601/ [Concomitant]
     Dosage: 80 mg, UNK
  8. POTASSIUM [Concomitant]
     Dosage: 25 mug, UNK
  9. TYLENOL /00020001/ [Concomitant]
     Dosage: 325 mg, UNK
  10. IRON SULFATE [Concomitant]
     Dosage: 83 mg, UNK

REACTIONS (3)
  - Feeling abnormal [Unknown]
  - Throat irritation [Unknown]
  - Nausea [Unknown]
